FAERS Safety Report 17165708 (Version 1)
Quarter: 2019Q4

REPORT INFORMATION
  Report Type: Spontaneous
  Country: DE (occurrence: DE)
  Receive Date: 20191217
  Receipt Date: 20191217
  Transmission Date: 20200122
  Serious: Yes (Hospitalization)
  Sender: FDA-Public Use
  Company Number: DE-JNJFOC-20191213878

PATIENT
  Age: 74 Year
  Sex: Female
  Weight: 93 kg

DRUGS (2)
  1. RIVAROXABAN [Suspect]
     Active Substance: RIVAROXABAN
     Indication: PRODUCT USED FOR UNKNOWN INDICATION
     Dosage: 20 MG, QD (1-0-0)
     Route: 048
     Dates: start: 20171208
  2. OLMESARTAN [Concomitant]
     Active Substance: OLMESARTAN
     Indication: HYPERTENSION
     Dosage: 20 MG, QD
     Route: 048

REACTIONS (1)
  - Knee arthroplasty [Recovered/Resolved]

NARRATIVE: CASE EVENT DATE: 20181126
